FAERS Safety Report 10103308 (Version 1)
Quarter: 2014Q2

REPORT INFORMATION
  Report Type: Spontaneous
  Country: US (occurrence: US)
  Receive Date: 20140424
  Receipt Date: 20140424
  Transmission Date: 20141212
  Serious: No
  Sender: FDA-Public Use
  Company Number: US-BRISTOL-MYERS SQUIBB COMPANY-20230116

PATIENT
  Age: 78 Year
  Sex: Male
  Weight: 73.92 kg

DRUGS (2)
  1. COUMADIN [Suspect]
     Indication: CEREBROVASCULAR ACCIDENT
     Dates: start: 201306
  2. ELIQUIS [Suspect]

REACTIONS (4)
  - Urticaria [Recovered/Resolved]
  - Amnesia [Unknown]
  - Hypoacusis [Unknown]
  - Skin haemorrhage [Unknown]
